FAERS Safety Report 22059514 (Version 1)
Quarter: 2023Q1

REPORT INFORMATION
  Report Type: Spontaneous
  Country: US (occurrence: None)
  Receive Date: 20230302
  Receipt Date: 20230302
  Transmission Date: 20230418
  Serious: Yes (Other)
  Sender: FDA-Public Use
  Company Number: None

PATIENT
  Age: 17 Year
  Sex: Female
  Weight: 67.5 kg

DRUGS (1)
  1. SERTRALINE HYDROCHLORIDE [Suspect]
     Active Substance: SERTRALINE HYDROCHLORIDE
     Indication: Depression
     Route: 048
     Dates: start: 20230217, end: 20230228

REACTIONS (3)
  - Product substitution issue [None]
  - Depression [None]
  - Thinking abnormal [None]

NARRATIVE: CASE EVENT DATE: 20230220
